FAERS Safety Report 11745173 (Version 2)
Quarter: 2016Q1

REPORT INFORMATION
  Report Type: Spontaneous
  Country: US (occurrence: US)
  Receive Date: 20151117
  Receipt Date: 20160217
  Transmission Date: 20160525
  Serious: Yes (Hospitalization)
  Sender: FDA-Public Use
  Company Number: US-IROKO PHARMACEUTICALS LLC-US-I09001-15-00159

PATIENT
  Age: 57 Year
  Sex: Male

DRUGS (1)
  1. ZORVOLEX [Suspect]
     Active Substance: DICLOFENAC
     Indication: ARTHRITIS
     Route: 048
     Dates: start: 2015, end: 2015

REACTIONS (2)
  - Stent placement [Recovered/Resolved]
  - Myocardial infarction [Recovered/Resolved]

NARRATIVE: CASE EVENT DATE: 20150830
